FAERS Safety Report 6544645-1 (Version None)
Quarter: 2010Q1

REPORT INFORMATION
  Report Type: 
  Country: None (occurrence: None)
  Receive Date: 20100121
  Receipt Date: 20100118
  Transmission Date: 20100710
  Serious: Yes (Death, Other)
  Sender: FDA-Public Use
  Company Number: PHEH2010US00864

PATIENT
  Sex: Female
  Weight: 52.608 kg

DRUGS (4)
  1. RECLAST [Suspect]
     Dosage: 5 MG
     Route: 042
     Dates: start: 20090206
  2. CRESTOR [Concomitant]
     Indication: BLOOD CHOLESTEROL INCREASED
     Dosage: 10 MG, QD
     Route: 048
  3. CELEBREX [Concomitant]
     Dosage: 200 MG, QD
     Route: 048
  4. FLOVENT [Concomitant]
     Indication: ASTHMA
     Dosage: 2 PUFFS BID

REACTIONS (3)
  - DEATH [None]
  - LUNG NEOPLASM MALIGNANT [None]
  - PULMONARY MASS [None]
